FAERS Safety Report 11780747 (Version 2)
Quarter: 2016Q1

REPORT INFORMATION
  Report Type: Report from Study
  Country: RU (occurrence: RU)
  Receive Date: 20151126
  Receipt Date: 20160222
  Transmission Date: 20160525
  Serious: No
  Sender: FDA-Public Use
  Company Number: RU-ROCHE-1426019

PATIENT
  Age: 42 Year
  Sex: Female
  Weight: 60 kg

DRUGS (2)
  1. BLINDED COBIMETINIB [Suspect]
     Active Substance: COBIMETINIB
     Indication: MALIGNANT MELANOMA
     Dosage: RECENT DOSE OF COBIMETINIB : 04/MAR/2014, 11/DEC/2014
     Route: 048
     Dates: start: 20131120
  2. VEMURAFENIB [Suspect]
     Active Substance: VEMURAFENIB
     Indication: MALIGNANT MELANOMA
     Dosage: RECENT DOSE OF VEMURAFENIB : 04/MAR/2014, 14/DEC/2014
     Route: 048
     Dates: start: 20131120

REACTIONS (2)
  - Retinal detachment [Recovered/Resolved]
  - Retinal detachment [Recovered/Resolved]

NARRATIVE: CASE EVENT DATE: 20140305
